FAERS Safety Report 7766571-2 (Version None)
Quarter: 2011Q3

REPORT INFORMATION
  Report Type: 
  Country: None (occurrence: None)
  Receive Date: 20110922
  Receipt Date: 20091027
  Transmission Date: 20111222
  Serious: No
  Sender: FDA-Public Use
  Company Number: 2009BI034917

PATIENT
  Age: 58 Year
  Sex: Female

DRUGS (1)
  1. TYSABRI [Suspect]
     Indication: MULTIPLE SCLEROSIS
     Route: 042
     Dates: start: 20061006

REACTIONS (4)
  - HEADACHE [None]
  - LIGAMENT SPRAIN [None]
  - MUSCULAR WEAKNESS [None]
  - MENISCUS LESION [None]
